FAERS Safety Report 5173828-0 (Version None)
Quarter: 2006Q4

REPORT INFORMATION
  Report Type: 
  Country: None (occurrence: None)
  Receive Date: 20061214
  Receipt Date: 20061208
  Transmission Date: 20070319
  Serious: Yes (Other)
  Sender: FDA-Public Use
  Company Number: FR-GLAXOSMITHKLINE-B0449999A

PATIENT
  Age: 32 Year
  Sex: Female

DRUGS (1)
  1. ARIXTRA [Suspect]
     Dosage: 2.5MG PER DAY
     Route: 058
     Dates: start: 20061101, end: 20061201

REACTIONS (2)
  - THROMBOCYTHAEMIA [None]
  - THROMBOSIS [None]
